FAERS Safety Report 9696246 (Version 2)
Quarter: 2013Q4

REPORT INFORMATION
  Report Type: Spontaneous
  Country: KR (occurrence: KR)
  Receive Date: 20131119
  Receipt Date: 20131126
  Transmission Date: 20140711
  Serious: No
  Sender: FDA-Public Use
  Company Number: KR-B.I. PHARMACEUTICALS,INC./RIDGEFIELD-2013-BI-37642RK

PATIENT
  Age: 54 Year
  Sex: Female

DRUGS (5)
  1. SEVIKAR/AMLODIPINE BESYLATE [Concomitant]
     Indication: SUPPLEMENTATION THERAPY
  2. THIOCTIC ACID [Concomitant]
  3. TRAJENTA [Suspect]
     Indication: TYPE 2 DIABETES MELLITUS
     Dosage: 5 MG
     Route: 048
     Dates: start: 20130705, end: 20131109
  4. AMARYL/METFORMIN HCL [Concomitant]
     Indication: HYPERTENSION
  5. GLUCODOWN/METFORMIN HCL [Concomitant]
     Indication: HYPERTENSION

REACTIONS (6)
  - Oedema peripheral [Not Recovered/Not Resolved]
  - Pain in extremity [Not Recovered/Not Resolved]
  - Hypoglycaemia [Unknown]
  - Weight increased [Unknown]
  - Hyperglycaemia [Unknown]
  - Angioedema [Unknown]
